FAERS Safety Report 25426914 (Version 1)
Quarter: 2025Q2

REPORT INFORMATION
  Report Type: Spontaneous
  Country: US (occurrence: US)
  Receive Date: 20250612
  Receipt Date: 20250612
  Transmission Date: 20250717
  Serious: No
  Sender: AMGEN
  Company Number: US-AMGEN-USASP2025107088

PATIENT
  Age: 41 Year
  Sex: Female

DRUGS (1)
  1. PAVBLU [Suspect]
     Active Substance: AFLIBERCEPT-AYYH
     Indication: Neovascular age-related macular degeneration
     Route: 065

REACTIONS (1)
  - Injection site pain [Recovered/Resolved]
